FAERS Safety Report 4773143-0 (Version None)
Quarter: 2005Q3

REPORT INFORMATION
  Report Type: 
  Country: None (occurrence: None)
  Receive Date: 20050919
  Receipt Date: 20050908
  Transmission Date: 20060218
  Serious: Yes (Other)
  Sender: FDA-Public Use
  Company Number: CHPA2005US02816

PATIENT
  Age: 69 Year
  Sex: Female

DRUGS (1)
  1. PERDIEM FIBER (NCH)(PSYLLIUM) UNKNOWN [Suspect]
     Indication: CONSTIPATION

REACTIONS (7)
  - DYSPHONIA [None]
  - DYSPNOEA [None]
  - FLUSHING [None]
  - GENERALISED OEDEMA [None]
  - NAUSEA [None]
  - URTICARIA [None]
  - WHEEZING [None]
